FAERS Safety Report 22309215 (Version 3)
Quarter: 2024Q1

REPORT INFORMATION
  Report Type: Spontaneous
  Country: CL (occurrence: CL)
  Receive Date: 20230511
  Receipt Date: 20240129
  Transmission Date: 20240409
  Serious: Yes (Other)
  Sender: FDA-Public Use
  Company Number: CL-PFIZER INC-PV202300082514

PATIENT
  Age: 77 Year
  Sex: Male

DRUGS (1)
  1. XALKORI [Suspect]
     Active Substance: CRIZOTINIB
     Indication: Lung cancer metastatic
     Dosage: 250 MG, EVERY 12 HOURS, EVERY OTHER DAY, AND 250 MG, DAILY, ON THE OTHER DAYS
     Route: 048

REACTIONS (11)
  - Dementia [Unknown]
  - International normalised ratio increased [Unknown]
  - Off label use [Unknown]
  - Skin exfoliation [Unknown]
  - Dizziness [Unknown]
  - Oedema peripheral [Unknown]
  - Fall [Unknown]
  - Dry skin [Unknown]
  - Productive cough [Unknown]
  - Disorientation [Unknown]
  - Gait disturbance [Unknown]
